FAERS Safety Report 23779721 (Version 3)
Quarter: 2024Q3

REPORT INFORMATION
  Report Type: Spontaneous
  Country: US (occurrence: US)
  Receive Date: 20240424
  Receipt Date: 20240830
  Transmission Date: 20241016
  Serious: No
  Sender: MYLAN
  Company Number: US-MYLANLABS-2024M1032418

PATIENT
  Sex: Male

DRUGS (3)
  1. TYRVAYA [Interacting]
     Active Substance: VARENICLINE TARTRATE
     Indication: Dry eye
     Dosage: UNK
     Route: 045
     Dates: start: 2023
  2. TYRVAYA [Interacting]
     Active Substance: VARENICLINE TARTRATE
     Dosage: 0.03 MILLIGRAM, BID (TWICE DAILY)
     Route: 045
     Dates: start: 2024
  3. LASTACAFT [Interacting]
     Active Substance: ALCAFTADINE
     Indication: Hypersensitivity
     Dosage: UNK
     Route: 065

REACTIONS (6)
  - Lacrimation increased [Not Recovered/Not Resolved]
  - Sneezing [Unknown]
  - Drug interaction [Unknown]
  - Drug ineffective [Unknown]
  - Intentional product misuse [Unknown]
  - Expired product administered [Unknown]

NARRATIVE: CASE EVENT DATE: 20240101
